FAERS Safety Report 25698882 (Version 1)
Quarter: 2025Q3

REPORT INFORMATION
  Report Type: Spontaneous
  Country: CN (occurrence: CN)
  Receive Date: 20250819
  Receipt Date: 20250819
  Transmission Date: 20251021
  Serious: Yes (Other)
  Sender: DAIICHI
  Company Number: CN-DSJP-DS-2025-159260-CN

PATIENT
  Age: 67 Year
  Sex: Female
  Weight: 46 kg

DRUGS (2)
  1. ENHERTU [Suspect]
     Active Substance: FAM-TRASTUZUMAB DERUXTECAN-NXKI
     Indication: Renal cancer
     Dosage: 248.4 MG, SINGLE
     Route: 041
     Dates: start: 20250731, end: 20250731
  2. PACLITAXEL [Suspect]
     Active Substance: PACLITAXEL
     Indication: Renal cancer
     Dosage: 191 MG, SINGLE
     Route: 041
     Dates: start: 20250731, end: 20250731

REACTIONS (3)
  - Agranulocytosis [Recovered/Resolved]
  - Infection [Recovered/Resolved]
  - Diarrhoea [Recovered/Resolved]

NARRATIVE: CASE EVENT DATE: 20250808
